FAERS Safety Report 21003066 (Version 1)
Quarter: 2022Q2

REPORT INFORMATION
  Report Type: Spontaneous
  Country: US (occurrence: None)
  Receive Date: 20220623
  Receipt Date: 20220623
  Transmission Date: 20220721
  Serious: Yes (Death)
  Sender: FDA-Public Use
  Company Number: None

PATIENT
  Age: 85 Year
  Sex: Female

DRUGS (1)
  1. PULMOZYME [Suspect]
     Active Substance: DORNASE ALFA
     Indication: Infective pulmonary exacerbation of cystic fibrosis
     Dosage: OTHER QUANTITY : 2.5MG/2.5ML;?FREQUENCY : DAILY;?
     Route: 055
     Dates: start: 20150422, end: 202206

REACTIONS (1)
  - Death [None]

NARRATIVE: CASE EVENT DATE: 20220601
